FAERS Safety Report 26190214 (Version 1)
Quarter: 2025Q4

REPORT INFORMATION
  Report Type: Report from Study
  Country: US (occurrence: US)
  Receive Date: 20251223
  Receipt Date: 20251223
  Transmission Date: 20260117
  Serious: Yes (Death)
  Sender: JOHNSON AND JOHNSON
  Company Number: US-JNJFOC-20251226808

PATIENT
  Age: 62 Year
  Sex: Male

DRUGS (1)
  1. CILTACABTAGENE AUTOLEUCEL [Suspect]
     Active Substance: CILTACABTAGENE AUTOLEUCEL
     Indication: Plasma cell myeloma
     Dosage: TOTAL NUMBER OF CELLS ADMINISTERED: 0.7; TOTAL CELLS EXPONENT VALUE: 8

REACTIONS (3)
  - Multiple organ dysfunction syndrome [Fatal]
  - Hepatic failure [Fatal]
  - Pancytopenia [Fatal]
